FAERS Safety Report 6149861-9 (Version None)
Quarter: 2009Q2

REPORT INFORMATION
  Report Type: 
  Country: None (occurrence: None)
  Receive Date: 20090409
  Receipt Date: 20090331
  Transmission Date: 20091009
  Serious: Yes (Hospitalization)
  Sender: FDA-Public Use
  Company Number: JP-PFIZER INC-2009182792

PATIENT

DRUGS (5)
  1. SELARA [Suspect]
     Dosage: 50 MG, DAILY
     Route: 048
     Dates: start: 20090127, end: 20090304
  2. ADALAT CC [Concomitant]
     Route: 048
  3. CARDENALIN [Concomitant]
     Route: 048
  4. LIPIDIL [Concomitant]
     Route: 048
  5. ALLELOCK [Concomitant]
     Route: 048

REACTIONS (1)
  - LIVER DISORDER [None]
